FAERS Safety Report 10102305 (Version 2)
Quarter: 2014Q2

REPORT INFORMATION
  Report Type: Spontaneous
  Country: US (occurrence: US)
  Receive Date: 20140424
  Receipt Date: 20140603
  Transmission Date: 20141212
  Serious: No
  Sender: FDA-Public Use
  Company Number: US-ROXANE LABORATORIES, INC.-2014-RO-00659RO

PATIENT
  Age: 69 Year
  Sex: Male

DRUGS (1)
  1. FLUTICASONE [Suspect]
     Indication: MULTIPLE ALLERGIES
     Route: 045
     Dates: start: 2013

REACTIONS (2)
  - Drug ineffective [Not Recovered/Not Resolved]
  - Product quality issue [Unknown]
